FAERS Safety Report 14307627 (Version 2)
Quarter: 2018Q2

REPORT INFORMATION
  Report Type: Report from Study
  Country: US (occurrence: US)
  Receive Date: 20171220
  Receipt Date: 20180405
  Transmission Date: 20180711
  Serious: Yes (Death)
  Sender: FDA-Public Use
  Company Number: US-TEVA-2017-US-833712

PATIENT
  Sex: Female

DRUGS (5)
  1. OXYCO/APAP [Concomitant]
  2. MORPHINE [Concomitant]
     Active Substance: MORPHINE
  3. MIRTAZAPINE. [Concomitant]
     Active Substance: MIRTAZAPINE
  4. COPAXONE [Suspect]
     Active Substance: GLATIRAMER ACETATE
     Indication: MULTIPLE SCLEROSIS
     Route: 058
     Dates: start: 20161026, end: 201803
  5. VALIUM [Concomitant]
     Active Substance: DIAZEPAM

REACTIONS (2)
  - Injection site nodule [Unknown]
  - Death [Fatal]
